FAERS Safety Report 8987424 (Version 1)
Quarter: 2012Q4

REPORT INFORMATION
  Report Type: Report from Study
  Country: JP (occurrence: JP)
  Receive Date: 20121227
  Receipt Date: 20121227
  Transmission Date: 20130627
  Serious: Yes (Hospitalization)
  Sender: FDA-Public Use
  Company Number: JP-NAPPMUNDI-GBR-2012-0012468

PATIENT
  Age: 88 Year
  Sex: Female

DRUGS (9)
  1. BUPRENORPHINE TRANSDERMAL SYSTEM [Suspect]
     Indication: ANALGESIC THERAPY
     Dosage: 5 mcg, q1h
     Route: 062
     Dates: start: 20120315, end: 20120324
  2. ZYLORIC [Concomitant]
     Indication: HYPERURICAEMIA
     Dosage: 100 mg, daily
     Route: 048
  3. MYSLEE [Concomitant]
     Indication: INSOMNIA
     Dosage: 5 mg, daily
     Route: 048
  4. OPALMON [Concomitant]
     Indication: LUMBAR SPINAL STENOSIS
     Dosage: 15 mcg, daily
     Route: 048
  5. PURSENNID [Concomitant]
     Indication: CONSTIPATION
     Dosage: 12 mg, daily
     Route: 048
  6. ALOSENN                            /00476901/ [Concomitant]
     Indication: CONSTIPATION
     Dosage: 1.5 g, daily
     Route: 048
  7. DEPAS [Concomitant]
     Indication: INSOMNIA
     Dosage: 0.5 mg, daily
     Route: 048
  8. MOHRUS [Concomitant]
     Dosage: UNK UNK, prn
     Route: 061
  9. NOVAMIN                            /00013301/ [Concomitant]
     Indication: PROPHYLAXIS
     Dosage: 10 mg, daily
     Route: 048
     Dates: start: 20120315, end: 20120323

REACTIONS (1)
  - Altered state of consciousness [Recovering/Resolving]
